FAERS Safety Report 17359808 (Version 1)
Quarter: 2020Q1

REPORT INFORMATION
  Report Type: Spontaneous
  Country: CA (occurrence: CA)
  Receive Date: 20200203
  Receipt Date: 20200203
  Transmission Date: 20200409
  Serious: Yes (Hospitalization, Other)
  Sender: FDA-Public Use
  Company Number: CA-TEVA-2020-CA-1177226

PATIENT
  Sex: Female

DRUGS (20)
  1. CYANOCOBALAMIN. [Concomitant]
     Active Substance: CYANOCOBALAMIN
  2. LOPERAMIDE [Concomitant]
     Active Substance: LOPERAMIDE
  3. LORAZEPAM. [Concomitant]
     Active Substance: LORAZEPAM
  4. METHOTREXATE. [Concomitant]
     Active Substance: METHOTREXATE
  5. QUETIAPINE. [Concomitant]
     Active Substance: QUETIAPINE
  6. TRAZODONE [Concomitant]
     Active Substance: TRAZODONE HYDROCHLORIDE
  7. CODEINE [Concomitant]
     Active Substance: CODEINE
  8. MIRTAZAPINE. [Concomitant]
     Active Substance: MIRTAZAPINE
  9. OMEPRAZOLE. [Concomitant]
     Active Substance: OMEPRAZOLE
  10. PENTASA [Concomitant]
     Active Substance: MESALAMINE
  11. PREDNISONE. [Suspect]
     Active Substance: PREDNISONE
     Indication: PRODUCT USED FOR UNKNOWN INDICATION
     Dosage: 35 MILLIGRAM DAILY;
     Route: 065
  12. LEVOTHYROXINE. [Concomitant]
     Active Substance: LEVOTHYROXINE
  13. VENLAFAXINE [Concomitant]
     Active Substance: VENLAFAXINE HYDROCHLORIDE
  14. SOLU-MEDROL [Suspect]
     Active Substance: METHYLPREDNISOLONE SODIUM SUCCINATE
     Indication: PRODUCT USED FOR UNKNOWN INDICATION
     Route: 042
  15. PARA-AMINOSALICYLIC ACID [Concomitant]
     Active Substance: AMINOSALICYLIC ACID
  16. BUDESONIDE. [Suspect]
     Active Substance: BUDESONIDE
     Indication: PRODUCT USED FOR UNKNOWN INDICATION
     Dosage: 6 MILLIGRAM DAILY;
     Route: 048
  17. HYOSCINE [Concomitant]
     Active Substance: SCOPOLAMINE
  18. BISACODYL. [Concomitant]
     Active Substance: BISACODYL
  19. CLONAZEPAM. [Concomitant]
     Active Substance: CLONAZEPAM
  20. GRAVOL [Concomitant]
     Active Substance: DIMENHYDRINATE

REACTIONS (2)
  - Osteoporosis [Unknown]
  - Small intestinal obstruction [Unknown]
